FAERS Safety Report 7535541-1 (Version None)
Quarter: 2011Q2

REPORT INFORMATION
  Report Type: 
  Country: None (occurrence: None)
  Receive Date: 20110609
  Receipt Date: 20110525
  Transmission Date: 20111010
  Serious: Yes (Hospitalization, Other)
  Sender: FDA-Public Use
  Company Number: US-BAYER-201033764NA

PATIENT
  Age: 26 Year
  Sex: Female
  Weight: 75.737 kg

DRUGS (3)
  1. YAZ [Suspect]
     Indication: CONTRACEPTION
     Route: 048
     Dates: start: 20070101, end: 20070701
  2. ALEVE (CAPLET) [Concomitant]
  3. YAZ [Suspect]
     Indication: ACNE

REACTIONS (6)
  - PAIN IN EXTREMITY [None]
  - OEDEMA PERIPHERAL [None]
  - DEEP VEIN THROMBOSIS [None]
  - CHOLECYSTECTOMY [None]
  - PULMONARY EMBOLISM [None]
  - CHOLELITHIASIS [None]
